FAERS Safety Report 21778711 (Version 1)
Quarter: 2022Q4

REPORT INFORMATION
  Report Type: Spontaneous
  Country: US (occurrence: US)
  Receive Date: 20221226
  Receipt Date: 20221226
  Transmission Date: 20230113
  Serious: No
  Sender: FDA-Public Use
  Company Number: US-MIGRATION_PFIZER-2022BHV003269

PATIENT
  Age: 54 Year
  Sex: Female
  Weight: 56.750 kg

DRUGS (1)
  1. NURTEC ODT [Suspect]
     Active Substance: RIMEGEPANT SULFATE
     Indication: Product used for unknown indication
     Dosage: 1 TABLET
     Route: 065
     Dates: start: 202204

REACTIONS (2)
  - Product use issue [Unknown]
  - Drug ineffective [Unknown]
